FAERS Safety Report 8554332 (Version 2)
Quarter: 2017Q4

REPORT INFORMATION
  Report Type: Report from Study
  Country: PT (occurrence: PT)
  Receive Date: 20120509
  Receipt Date: 20171218
  Transmission Date: 20180321
  Serious: Yes (Death, Life-Threatening, Hospitalization, Other)
  Sender: FDA-Public Use
  Company Number: PT-ACTELION-A-CH2012-65087

PATIENT
  Age: 76 Year
  Sex: Female
  Weight: 60 kg

DRUGS (14)
  1. NITROGLYCERIN. [Concomitant]
     Active Substance: NITROGLYCERIN
     Indication: ISCHAEMIA
     Dosage: UNK
     Dates: start: 20070124, end: 20101122
  2. MAGNESIUM CHLORIDE. [Concomitant]
     Active Substance: MAGNESIUM CHLORIDE
     Indication: HYPOMAGNESAEMIA
     Dosage: UNK
     Dates: start: 20090206, end: 20101122
  3. FUROSEMIDE. [Concomitant]
     Active Substance: FUROSEMIDE
     Indication: OEDEMA PERIPHERAL
     Dosage: UNK
     Dates: start: 20100826, end: 20101122
  4. FOLIC ACID. [Concomitant]
     Active Substance: FOLIC ACID
     Dosage: UNK
     Dates: start: 20090917, end: 20101122
  5. METOLAZONE. [Concomitant]
     Active Substance: METOLAZONE
     Indication: DIURETIC THERAPY
     Dosage: UNK
     Dates: start: 20071114, end: 20101122
  6. OMEPRAZOLE. [Concomitant]
     Active Substance: OMEPRAZOLE
     Dosage: UNK
     Dates: start: 20090917, end: 20101122
  7. PENTOXIFYLLINE. [Concomitant]
     Active Substance: PENTOXIFYLLINE
     Dosage: UNK
     Dates: start: 20080526, end: 20101122
  8. ALPROSTADIL. [Concomitant]
     Active Substance: ALPROSTADIL
     Dosage: 60 UNK, UNK
  9. ACETYLSALICYLIC ACID [Suspect]
     Active Substance: ASPIRIN
     Indication: THROMBOSIS PROPHYLAXIS
     Dosage: UNK
     Route: 065
     Dates: start: 20081015, end: 20101122
  10. LEVOTHYROXINE. [Concomitant]
     Active Substance: LEVOTHYROXINE
     Indication: HYPOTHYROIDISM
     Dosage: UNK
     Dates: start: 20060913, end: 20101122
  11. TRACLEER [Suspect]
     Active Substance: BOSENTAN
     Indication: SCLERODERMA ASSOCIATED DIGITAL ULCER
     Dosage: 62.5 MG, BID
     Route: 048
     Dates: start: 20090605, end: 20101122
  12. METHOTREXATE. [Concomitant]
     Active Substance: METHOTREXATE
     Indication: LOCALISED OEDEMA
     Dosage: UNK
     Dates: start: 20090917, end: 20101122
  13. QUINAPRIL HYDROCHLORIDE. [Concomitant]
     Active Substance: QUINAPRIL HYDROCHLORIDE
     Indication: HYPERTENSION
     Dosage: UNK
     Dates: start: 20070418, end: 20101122
  14. NIFEDIPINE. [Concomitant]
     Active Substance: NIFEDIPINE
     Indication: ISCHAEMIA
     Dosage: UNK
     Dates: start: 20060913, end: 20101122

REACTIONS (6)
  - Hiatus hernia [Fatal]
  - Hypovolaemic shock [Fatal]
  - Gastrointestinal haemorrhage [Fatal]
  - Oesophageal haemorrhage [Fatal]
  - Transfusion [Fatal]
  - Brain death [Fatal]

NARRATIVE: CASE EVENT DATE: 20101122
